FAERS Safety Report 23084297 (Version 1)
Quarter: 2023Q4

REPORT INFORMATION
  Report Type: Spontaneous
  Country: US (occurrence: US)
  Receive Date: 20231019
  Receipt Date: 20231019
  Transmission Date: 20240109
  Serious: Yes (Other)
  Sender: FDA-Public Use
  Company Number: US-MYLANLABS-2023M1108668

PATIENT
  Age: 75 Year
  Sex: Male

DRUGS (1)
  1. AMIODARONE [Suspect]
     Active Substance: AMIODARONE
     Indication: Atrial flutter
     Dosage: 200 MILLIGRAM, BID
     Route: 065

REACTIONS (5)
  - Pulmonary toxicity [Recovering/Resolving]
  - Eosinophilic pneumonia [Recovering/Resolving]
  - Respiratory failure [Recovering/Resolving]
  - Hypoxia [Recovering/Resolving]
  - Off label use [Unknown]
